FAERS Safety Report 8003316-5 (Version None)
Quarter: 2011Q4

REPORT INFORMATION
  Report Type: 
  Country: None (occurrence: None)
  Receive Date: 20111222
  Receipt Date: 20111221
  Transmission Date: 20120403
  Serious: Yes (Death)
  Sender: FDA-Public Use
  Company Number: PHHY2011AU105082

PATIENT
  Sex: Male

DRUGS (9)
  1. ZOLEDRONOC ACID [Suspect]
     Dosage: 5 MG,
     Route: 042
     Dates: start: 20100427
  2. ZOLEDRONOC ACID [Suspect]
     Dosage: 5 MG,
     Route: 042
  3. FOLATE SODIUM [Concomitant]
     Dosage: UNK UKN, UNK
  4. NEXIUM [Concomitant]
     Dosage: UNK UKN, UNK
  5. CALCIUM [Concomitant]
     Dosage: UNK UKN, UNK
  6. WARFARIN SODIUM [Concomitant]
     Dosage: UNK UKN, UNK
  7. VITAMIN D [Concomitant]
     Dosage: UNK UKN, UNK
  8. CORDARONE [Concomitant]
     Dosage: UNK UKN, UNK
  9. IRBESARTAN [Concomitant]
     Dosage: UNK UKN, UNK

REACTIONS (1)
  - DEATH [None]
